FAERS Safety Report 9361281 (Version 4)
Quarter: 2013Q4

REPORT INFORMATION
  Report Type: Report from Study
  Country: JP (occurrence: JP)
  Receive Date: 20130621
  Receipt Date: 20131230
  Transmission Date: 20140711
  Serious: Yes (Death, Hospitalization)
  Sender: FDA-Public Use
  Company Number: JP-CELGENEUS-087-50794-13041151

PATIENT
  Age: 75 Year
  Sex: Male
  Weight: 52 kg

DRUGS (168)
  1. VIDAZA [Suspect]
     Indication: MYELODYSPLASTIC SYNDROME
     Dosage: 75 MILLIGRAM/SQ. METER
     Route: 041
     Dates: start: 20110512, end: 20110518
  2. VIDAZA [Suspect]
     Dosage: 75 MILLIGRAM/SQ. METER
     Route: 041
     Dates: start: 20110609, end: 20110615
  3. VIDAZA [Suspect]
     Dosage: 100 MILLIGRAM/SQ. METER
     Route: 041
     Dates: start: 20110707, end: 20110713
  4. VIDAZA [Suspect]
     Dosage: 100 MILLIGRAM/SQ. METER
     Route: 041
     Dates: start: 20110804, end: 20110810
  5. VIDAZA [Suspect]
     Dosage: 100 MILLIGRAM/SQ. METER
     Route: 041
     Dates: start: 20110901, end: 20110905
  6. VIDAZA [Suspect]
     Dosage: 50 MILLIGRAM/SQ. METER
     Route: 041
     Dates: start: 20111027, end: 20111101
  7. VIDAZA [Suspect]
     Dosage: 70 MILLIGRAM/SQ. METER
     Route: 041
     Dates: start: 20111124, end: 20111129
  8. VIDAZA [Suspect]
     Dosage: 70 MILLIGRAM/SQ. METER
     Route: 041
     Dates: start: 20111224, end: 20111229
  9. VIDAZA [Suspect]
     Dosage: 100 MILLIGRAM/SQ. METER
     Route: 041
     Dates: start: 20120123, end: 20120123
  10. VIDAZA [Suspect]
     Dosage: 100 MILLIGRAM/SQ. METER
     Route: 041
     Dates: start: 20120215, end: 20120221
  11. VIDAZA [Suspect]
     Dosage: 100 MILLIGRAM/SQ. METER
     Route: 041
     Dates: start: 20120314, end: 20120323
  12. VIDAZA [Suspect]
     Dosage: 100 MILLIGRAM/SQ. METER
     Route: 041
     Dates: start: 20120416, end: 20120424
  13. VIDAZA [Suspect]
     Dosage: 100 MILLIGRAM/SQ. METER
     Route: 041
     Dates: start: 20120516, end: 20120524
  14. VIDAZA [Suspect]
     Dosage: 100 MILLIGRAM/SQ. METER
     Route: 041
     Dates: start: 20120618, end: 20120626
  15. VIDAZA [Suspect]
     Dosage: 100 MILLIGRAM/SQ. METER
     Route: 041
     Dates: start: 20120717, end: 20120725
  16. VIDAZA [Suspect]
     Dosage: 100 MILLIGRAM/SQ. METER
     Route: 041
     Dates: start: 20120816, end: 20120824
  17. VIDAZA [Suspect]
     Dosage: 100 MILLIGRAM/SQ. METER
     Route: 041
     Dates: start: 20120918, end: 20120926
  18. VIDAZA [Suspect]
     Dosage: 100 MILLIGRAM/SQ. METER
     Route: 041
     Dates: start: 20121019, end: 20121027
  19. VIDAZA [Suspect]
     Dosage: 100 MILLIGRAM/SQ. METER
     Route: 041
     Dates: start: 20121123, end: 20121127
  20. VIDAZA [Suspect]
     Dosage: 100 MILLICURIES
     Route: 041
     Dates: start: 20121218, end: 20121226
  21. VIDAZA [Suspect]
     Dosage: 110 MILLIGRAM/SQ. METER
     Route: 041
     Dates: start: 20130118, end: 20130124
  22. VIDAZA [Suspect]
     Dosage: 110 MILLIGRAM/SQ. METER
     Route: 041
     Dates: start: 20130215, end: 20130223
  23. VIDAZA [Suspect]
     Dosage: 110 MILLIGRAM/SQ. METER
     Route: 041
     Dates: start: 20130319, end: 20130321
  24. VIDAZA [Suspect]
     Dosage: 110 MILLIGRAM/SQ. METER
     Route: 041
     Dates: start: 20130403, end: 20130403
  25. RED BLOOD CELLS [Concomitant]
     Indication: PRODUCT USED FOR UNKNOWN INDICATION
     Route: 041
  26. PLATELETS [Concomitant]
     Indication: PRODUCT USED FOR UNKNOWN INDICATION
     Route: 041
  27. PREDONINE [Concomitant]
     Indication: PRODUCT USED FOR UNKNOWN INDICATION
     Route: 065
     Dates: end: 20110604
  28. PREDONINE [Concomitant]
     Route: 065
     Dates: start: 20110605
  29. PREDONINE [Concomitant]
     Route: 065
     Dates: end: 20120712
  30. PREDONINE [Concomitant]
     Route: 065
     Dates: start: 20120817, end: 20130304
  31. PREDONINE [Concomitant]
     Route: 065
     Dates: start: 2013, end: 2013
  32. PREDONINE [Concomitant]
     Route: 065
     Dates: start: 20130312, end: 20130403
  33. PREDONINE [Concomitant]
     Route: 065
     Dates: start: 20130404, end: 20130410
  34. MAGNESIUM OXIDE [Concomitant]
     Indication: PRODUCT USED FOR UNKNOWN INDICATION
     Route: 065
     Dates: start: 20110512, end: 20111204
  35. MAGNESIUM OXIDE [Concomitant]
     Route: 065
     Dates: start: 20120110, end: 20120124
  36. MAGNESIUM OXIDE [Concomitant]
     Route: 065
     Dates: start: 20120130, end: 20120206
  37. MAGNESIUM OXIDE [Concomitant]
     Route: 065
     Dates: start: 20120227, end: 20120304
  38. MAGNESIUM OXIDE [Concomitant]
     Route: 065
     Dates: start: 20120326, end: 20120408
  39. MAGNESIUM OXIDE [Concomitant]
     Route: 065
     Dates: start: 20120521, end: 20120610
  40. MAGNESIUM OXIDE [Concomitant]
     Route: 065
     Dates: start: 20120618, end: 2013
  41. MAGNESIUM OXIDE [Concomitant]
     Route: 065
     Dates: start: 20121201, end: 20130303
  42. MAGNESIUM OXIDE [Concomitant]
     Route: 065
     Dates: start: 20130304, end: 20130311
  43. MAGNESIUM OXIDE [Concomitant]
     Route: 065
     Dates: start: 20130312, end: 20130331
  44. MAGNESIUM OXIDE [Concomitant]
     Route: 065
     Dates: start: 20130404, end: 20130410
  45. SPIRIVA [Concomitant]
     Indication: PRODUCT USED FOR UNKNOWN INDICATION
     Route: 065
     Dates: end: 20110725
  46. PARIET [Concomitant]
     Indication: PRODUCT USED FOR UNKNOWN INDICATION
     Route: 065
     Dates: end: 20120206
  47. ZYLORIC [Concomitant]
     Indication: PRODUCT USED FOR UNKNOWN INDICATION
     Route: 065
  48. ZYLORIC [Concomitant]
     Route: 065
  49. ZYLORIC [Concomitant]
     Route: 065
     Dates: start: 20120521, end: 20120610
  50. ZYLORIC [Concomitant]
     Route: 065
     Dates: start: 20120618
  51. DIFLUCAN [Concomitant]
     Indication: PRODUCT USED FOR UNKNOWN INDICATION
     Route: 065
  52. DIFLUCAN [Concomitant]
     Route: 065
     Dates: end: 20130304
  53. DIFLUCAN [Concomitant]
     Route: 065
     Dates: end: 20130410
  54. MUCOSTA [Concomitant]
     Indication: PRODUCT USED FOR UNKNOWN INDICATION
     Route: 065
  55. MUCOSTA [Concomitant]
     Route: 065
     Dates: end: 20111204
  56. MUCOSTA [Concomitant]
     Route: 065
     Dates: start: 20120110, end: 20120206
  57. MUCOSTA [Concomitant]
     Route: 065
     Dates: start: 20120227, end: 20120408
  58. MUCOSTA [Concomitant]
     Route: 065
     Dates: start: 20120423
  59. MUCOSTA [Concomitant]
     Route: 065
     Dates: end: 20120701
  60. MUCOSTA [Concomitant]
     Route: 065
     Dates: start: 20120717, end: 20120730
  61. MUCOSTA [Concomitant]
     Route: 065
     Dates: start: 20120806, end: 20120826
  62. MUCOSTA [Concomitant]
     Route: 065
     Dates: start: 20120903, end: 20120923
  63. MUCOSTA [Concomitant]
     Route: 065
     Dates: start: 20121001, end: 20121014
  64. MUCOSTA [Concomitant]
     Route: 065
     Dates: start: 20121029, end: 20121111
  65. MUCOSTA [Concomitant]
     Route: 065
     Dates: start: 20121114, end: 20121127
  66. STROCAIN [Concomitant]
     Indication: PRODUCT USED FOR UNKNOWN INDICATION
     Route: 065
     Dates: end: 20110517
  67. ALLOID G [Concomitant]
     Indication: PRODUCT USED FOR UNKNOWN INDICATION
     Route: 065
     Dates: end: 20110522
  68. BIOFERMIN R [Concomitant]
     Indication: PRODUCT USED FOR UNKNOWN INDICATION
     Route: 065
     Dates: start: 20110513, end: 20110529
  69. CRAVIT [Concomitant]
     Indication: PRODUCT USED FOR UNKNOWN INDICATION
     Route: 065
     Dates: start: 20110526, end: 20110620
  70. CRAVIT [Concomitant]
     Route: 065
     Dates: start: 20110705, end: 20110711
  71. CRAVIT [Concomitant]
     Route: 065
     Dates: start: 20111128, end: 20111204
  72. CRAVIT [Concomitant]
     Route: 065
     Dates: start: 20120119, end: 20120125
  73. CRAVIT [Concomitant]
     Route: 065
     Dates: start: 20130311, end: 20130317
  74. CRAVIT [Concomitant]
     Route: 065
     Dates: start: 20130328, end: 20130331
  75. CRAVIT [Concomitant]
     Route: 065
     Dates: start: 20130327, end: 20130327
  76. GRANISETRON HYDROCHLORIDE [Concomitant]
     Indication: PRODUCT USED FOR UNKNOWN INDICATION
     Route: 065
     Dates: start: 20110512, end: 20110518
  77. GRANISETRON HYDROCHLORIDE [Concomitant]
     Route: 065
     Dates: start: 20110609, end: 20110615
  78. GRANISETRON HYDROCHLORIDE [Concomitant]
     Route: 065
     Dates: start: 20110707, end: 20110713
  79. GRANISETRON HYDROCHLORIDE [Concomitant]
     Route: 065
     Dates: start: 20110804, end: 20110806
  80. GRANISETRON HYDROCHLORIDE [Concomitant]
     Route: 065
     Dates: start: 20110808, end: 20110810
  81. GRANISETRON HYDROCHLORIDE [Concomitant]
     Route: 065
     Dates: start: 20110901, end: 20110901
  82. GRANISETRON HYDROCHLORIDE [Concomitant]
     Route: 065
     Dates: start: 20110905, end: 20110905
  83. GRANISETRON HYDROCHLORIDE [Concomitant]
     Route: 065
     Dates: start: 20111027, end: 20111029
  84. GRANISETRON HYDROCHLORIDE [Concomitant]
     Route: 065
     Dates: start: 20111031, end: 20111101
  85. GRANISETRON HYDROCHLORIDE [Concomitant]
     Route: 065
     Dates: start: 20111124, end: 20111129
  86. GRANISETRON HYDROCHLORIDE [Concomitant]
     Route: 065
     Dates: start: 20111224, end: 20111229
  87. GRANISETRON HYDROCHLORIDE [Concomitant]
     Route: 065
     Dates: start: 20120123, end: 20120123
  88. GRANISETRON HYDROCHLORIDE [Concomitant]
     Route: 065
     Dates: start: 20120215, end: 20120215
  89. GRANISETRON HYDROCHLORIDE [Concomitant]
     Route: 065
     Dates: start: 20120314, end: 20120314
  90. GRANISETRON HYDROCHLORIDE [Concomitant]
     Route: 065
     Dates: start: 20120416, end: 20120424
  91. GRANISETRON HYDROCHLORIDE [Concomitant]
     Route: 065
     Dates: start: 20120516, end: 20120518
  92. GRANISETRON HYDROCHLORIDE [Concomitant]
     Route: 065
     Dates: start: 20120521, end: 20120524
  93. GRANISETRON HYDROCHLORIDE [Concomitant]
     Route: 065
     Dates: start: 20120618, end: 20120619
  94. GRANISETRON HYDROCHLORIDE [Concomitant]
     Route: 065
     Dates: start: 20120621, end: 20120626
  95. GRANISETRON HYDROCHLORIDE [Concomitant]
     Route: 065
     Dates: start: 20120717, end: 20120720
  96. GRANISETRON HYDROCHLORIDE [Concomitant]
     Route: 065
     Dates: start: 20120723, end: 20120725
  97. GRANISETRON HYDROCHLORIDE [Concomitant]
     Route: 065
     Dates: start: 20120816, end: 20120817
  98. GRANISETRON HYDROCHLORIDE [Concomitant]
     Route: 065
     Dates: start: 20120820, end: 20120824
  99. GRANISETRON HYDROCHLORIDE [Concomitant]
     Route: 065
     Dates: start: 20120918, end: 20120921
  100. GRANISETRON HYDROCHLORIDE [Concomitant]
     Route: 065
     Dates: start: 20120924, end: 20120926
  101. GRANISETRON HYDROCHLORIDE [Concomitant]
     Route: 065
     Dates: start: 20121019, end: 20121019
  102. GRANISETRON HYDROCHLORIDE [Concomitant]
     Route: 065
     Dates: start: 20121022, end: 20121027
  103. GRANISETRON HYDROCHLORIDE [Concomitant]
     Route: 065
     Dates: start: 20121123, end: 20121127
  104. GRANISETRON HYDROCHLORIDE [Concomitant]
     Route: 065
     Dates: start: 20121218, end: 20121226
  105. GRANISETRON HYDROCHLORIDE [Concomitant]
     Route: 065
  106. GRANISETRON HYDROCHLORIDE [Concomitant]
     Route: 065
  107. GRANISETRON HYDROCHLORIDE [Concomitant]
     Route: 065
  108. GRANISETRON HYDROCHLORIDE [Concomitant]
     Route: 065
  109. MAXIPIME [Concomitant]
     Indication: PRODUCT USED FOR UNKNOWN INDICATION
     Route: 065
     Dates: end: 20110518
  110. MAXIPIME [Concomitant]
     Route: 065
     Dates: start: 20110616, end: 20110620
  111. MAXIPIME [Concomitant]
     Route: 065
     Dates: start: 20110621, end: 20110621
  112. MAXIPIME [Concomitant]
     Route: 065
     Dates: start: 20120114, end: 20120114
  113. MAXIPIME [Concomitant]
     Route: 065
     Dates: start: 20120115, end: 20120118
  114. MAXIPIME [Concomitant]
     Route: 065
     Dates: start: 20120123, end: 20120202
  115. MAXIPIME [Concomitant]
     Route: 065
     Dates: start: 20121113, end: 20130327
  116. KENALOG [Concomitant]
     Indication: PRODUCT USED FOR UNKNOWN INDICATION
     Route: 065
     Dates: start: 20111026
  117. KENALOG [Concomitant]
     Route: 065
     Dates: start: 20121022, end: 20121022
  118. SEROTONE [Concomitant]
     Indication: PRODUCT USED FOR UNKNOWN INDICATION
     Route: 065
     Dates: start: 20110807, end: 20110807
  119. SEROTONE [Concomitant]
     Route: 065
     Dates: start: 20110904, end: 20110904
  120. STARASID [Concomitant]
     Indication: PRODUCT USED FOR UNKNOWN INDICATION
     Route: 065
     Dates: start: 20120113, end: 20120116
  121. STARASID [Concomitant]
     Route: 065
     Dates: start: 20120121, end: 20120122
  122. AVELOX [Concomitant]
     Indication: PRODUCT USED FOR UNKNOWN INDICATION
     Route: 065
     Dates: start: 20120202, end: 20120217
  123. SODIUM BICARBONATE [Concomitant]
     Indication: PRODUCT USED FOR UNKNOWN INDICATION
     Route: 065
     Dates: start: 20120124, end: 20120130
  124. SODIUM BICARBONATE [Concomitant]
     Route: 065
     Dates: start: 20121113, end: 20121113
  125. SODIUM BICARBONATE [Concomitant]
     Route: 065
     Dates: start: 20121114, end: 20121211
  126. GASTER D [Concomitant]
     Indication: PRODUCT USED FOR UNKNOWN INDICATION
     Route: 065
     Dates: start: 20120124, end: 20120206
  127. GASTER D [Concomitant]
     Route: 065
     Dates: start: 20120227
  128. GASTER D [Concomitant]
     Route: 065
     Dates: end: 20121118
  129. ASPARA POTASSIUM [Concomitant]
     Indication: PRODUCT USED FOR UNKNOWN INDICATION
     Route: 065
     Dates: start: 20120126, end: 20120129
  130. ONEALFA [Concomitant]
     Indication: PRODUCT USED FOR UNKNOWN INDICATION
     Route: 065
     Dates: start: 20121001, end: 20121202
  131. GASMOTIN [Concomitant]
     Indication: PRODUCT USED FOR UNKNOWN INDICATION
     Route: 065
     Dates: start: 20121113, end: 20121204
  132. ALFAROL [Concomitant]
     Indication: PRODUCT USED FOR UNKNOWN INDICATION
     Route: 065
     Dates: start: 20121114, end: 20130304
  133. ALFAROL [Concomitant]
     Route: 065
     Dates: start: 20130305, end: 20130311
  134. ALFAROL [Concomitant]
     Route: 065
     Dates: start: 20130312, end: 20130403
  135. ALFAROL [Concomitant]
     Route: 065
     Dates: start: 20130404, end: 20130410
  136. TAKEPRON [Concomitant]
     Indication: PRODUCT USED FOR UNKNOWN INDICATION
     Route: 065
     Dates: start: 20121113, end: 20121120
  137. TAKEPRON [Concomitant]
     Route: 065
     Dates: end: 20130304
  138. TAKEPRON [Concomitant]
     Route: 065
     Dates: start: 20130305, end: 20130311
  139. TAKEPRON [Concomitant]
     Route: 065
     Dates: start: 20130312, end: 20130403
  140. TAKEPRON [Concomitant]
     Route: 065
     Dates: start: 20130404, end: 20130410
  141. FEBURIC [Concomitant]
     Indication: PRODUCT USED FOR UNKNOWN INDICATION
     Route: 065
     Dates: start: 20121113, end: 201301
  142. FEBURIC [Concomitant]
     Route: 065
     Dates: start: 20130115, end: 20130117
  143. FEBURIC [Concomitant]
     Route: 065
     Dates: start: 20130118, end: 20130122
  144. FEBURIC [Concomitant]
     Route: 065
     Dates: start: 20130123, end: 20130304
  145. FEBURIC [Concomitant]
     Route: 065
     Dates: start: 20130305, end: 20130311
  146. FEBURIC [Concomitant]
     Route: 065
     Dates: start: 20130312, end: 20130403
  147. FEBURIC [Concomitant]
     Route: 065
     Dates: start: 20130404, end: 20130410
  148. LASIX [Concomitant]
     Indication: PRODUCT USED FOR UNKNOWN INDICATION
     Route: 065
     Dates: start: 20121113, end: 20121115
  149. ORGARAN [Concomitant]
     Indication: PRODUCT USED FOR UNKNOWN INDICATION
     Route: 065
     Dates: start: 20121115
  150. SOLDEM 1 [Concomitant]
     Indication: PRODUCT USED FOR UNKNOWN INDICATION
     Route: 065
     Dates: start: 20121113
  151. BFLUID [Concomitant]
     Indication: PRODUCT USED FOR UNKNOWN INDICATION
     Route: 065
     Dates: start: 20121113, end: 20121113
  152. BFLUID [Concomitant]
     Route: 065
     Dates: start: 20121114
  153. SLOW-K [Concomitant]
     Indication: PRODUCT USED FOR UNKNOWN INDICATION
     Route: 065
     Dates: end: 20121124
  154. SLOW-K [Concomitant]
     Route: 065
     Dates: start: 20121125, end: 20121126
  155. PURSENNID [Concomitant]
     Indication: PRODUCT USED FOR UNKNOWN INDICATION
     Route: 065
     Dates: end: 20121205
  156. MYSLEE [Concomitant]
     Indication: PRODUCT USED FOR UNKNOWN INDICATION
     Route: 065
     Dates: start: 20121207, end: 20130324
  157. LECICARBON [Concomitant]
     Indication: PRODUCT USED FOR UNKNOWN INDICATION
     Route: 065
     Dates: start: 20121126, end: 20121129
  158. HIRUDOID [Concomitant]
     Indication: PRODUCT USED FOR UNKNOWN INDICATION
     Route: 065
     Dates: start: 20130408, end: 20130408
  159. CALONAL [Concomitant]
     Indication: PRODUCT USED FOR UNKNOWN INDICATION
     Route: 065
     Dates: start: 20130121, end: 20130125
  160. CALONAL [Concomitant]
     Route: 065
     Dates: start: 20130404, end: 20130404
  161. CALONAL [Concomitant]
     Route: 065
     Dates: start: 20130405, end: 20130410
  162. RACOL-NF [Concomitant]
     Indication: PRODUCT USED FOR UNKNOWN INDICATION
     Route: 065
     Dates: start: 20130223, end: 20130223
  163. RACOL-NF [Concomitant]
     Route: 065
     Dates: start: 20130225, end: 20130303
  164. RACOL-NF [Concomitant]
     Route: 065
     Dates: start: 20130404, end: 20130410
  165. WHITE PETROLATUM [Concomitant]
     Indication: PRODUCT USED FOR UNKNOWN INDICATION
     Route: 065
     Dates: start: 20130304, end: 20130404
  166. WHITE PETROLATUM [Concomitant]
     Route: 065
     Dates: start: 20130409, end: 20130409
  167. LACTULOSE [Concomitant]
     Indication: PRODUCT USED FOR UNKNOWN INDICATION
     Route: 065
     Dates: start: 20130409, end: 20130410
  168. LAXOBERON [Concomitant]
     Indication: PRODUCT USED FOR UNKNOWN INDICATION
     Route: 065
     Dates: start: 20121201

REACTIONS (7)
  - Acute myeloid leukaemia [Fatal]
  - Disseminated intravascular coagulation [Recovered/Resolved]
  - Tumour lysis syndrome [Recovered/Resolved]
  - Blood creatinine increased [Recovered/Resolved]
  - Blood urea increased [Recovered/Resolved]
  - Tumour lysis syndrome [Recovered/Resolved]
  - Pneumonia [Recovering/Resolving]
